FAERS Safety Report 4945725-4 (Version None)
Quarter: 2006Q1

REPORT INFORMATION
  Report Type: 
  Country: None (occurrence: None)
  Receive Date: 20060316
  Receipt Date: 20060308
  Transmission Date: 20060701
  Serious: Yes (Other)
  Sender: FDA-Public Use
  Company Number: PHBS2006BR03824

PATIENT
  Age: 7 Year
  Sex: Female
  Weight: 28 kg

DRUGS (1)
  1. RITALIN [Suspect]
     Indication: ATTENTION DEFICIT/HYPERACTIVITY DISORDER
     Dosage: 1 DF, Q8H
     Route: 048

REACTIONS (3)
  - AGGRESSION [None]
  - DEPRESSION [None]
  - INSOMNIA [None]
